FAERS Safety Report 8520530-0 (Version None)
Quarter: 2012Q3

REPORT INFORMATION
  Report Type: 
  Country: None (occurrence: None)
  Receive Date: 20120719
  Receipt Date: 20120717
  Transmission Date: 20120928
  Serious: Yes (Hospitalization)
  Sender: FDA-Public Use
  Company Number: JP-PFIZER INC-2012171564

PATIENT
  Age: 73 Year
  Sex: Female
  Weight: 40 kg

DRUGS (10)
  1. AMLODIPINE BESYLATE [Suspect]
     Indication: HYPERTENSION
     Dosage: 10 MG, 1X/DAY
     Route: 048
     Dates: start: 20120213, end: 20120316
  2. ARICEPT [Concomitant]
     Indication: DEMENTIA
     Dosage: UNK
     Route: 048
  3. FUROSEMIDE [Concomitant]
     Indication: OEDEMA
     Dosage: UNK
     Route: 048
  4. MAGMITT [Concomitant]
     Indication: CONSTIPATION
     Dosage: UNK
     Route: 048
  5. DEPAKENE [Concomitant]
     Indication: EPILEPSY
     Dosage: UNK
     Route: 048
  6. PRAVASTATIN SODIUM [Concomitant]
     Indication: HYPERCHOLESTEROLAEMIA
     Dosage: UNK
     Route: 048
  7. YOKUKAN-SAN [Concomitant]
     Indication: DEMENTIA
     Dosage: UNK
     Route: 048
  8. CANDESARTAN CILEXETIL [Concomitant]
     Indication: HYPERTENSION
     Dosage: 8 MG/DAY
     Route: 048
  9. ACTOS [Concomitant]
     Indication: DIABETES MELLITUS
     Dosage: UNK
     Route: 048
  10. SENNOSIDE [Concomitant]
     Indication: CONSTIPATION
     Dosage: UNK
     Route: 048

REACTIONS (1)
  - MYELITIS [None]
